FAERS Safety Report 9298411 (Version 1)
Quarter: 2012Q4

REPORT INFORMATION
  Report Type: Spontaneous
  Country: FR (occurrence: None)
  Receive Date: 20121031
  Receipt Date: 20121031
  Transmission Date: 20130627
  Serious: Yes (Hospitalization)
  Sender: FDA-Public Use
  Company Number: 218922

PATIENT
  Age: 75 Year
  Sex: Male
  Weight: 75.5 kg

DRUGS (6)
  1. INNOHEP (TINZAPARIN SODIUM) [Suspect]
     Indication: ATRIAL FIBRILLATION
     Route: 058
     Dates: start: 20100304, end: 20120822
  2. SUTENT (SUNITINIB) [Concomitant]
  3. AFINITOR (EVEROLIMUS) [Concomitant]
  4. LEVOTHYROX (LEVOTHYROXINE SODIUM) [Concomitant]
  5. CARDENSIEL (BISOPROLOL FUMARATE) [Concomitant]
  6. SORAFENIB (SORAFENIB) [Concomitant]

REACTIONS (11)
  - Shock haemorrhagic [None]
  - Haematoma [None]
  - General physical health deterioration [None]
  - Arterial haemorrhage [None]
  - Hypotension [None]
  - Atrioventricular block complete [None]
  - Hyperkalaemia [None]
  - Hyponatraemia [None]
  - Renal failure acute [None]
  - Rhabdomyolysis [None]
  - Incorrect drug administration duration [None]
